FAERS Safety Report 10950839 (Version 1)
Quarter: 2015Q1

REPORT INFORMATION
  Report Type: Spontaneous
  Country: US (occurrence: None)
  Receive Date: 20150226
  Receipt Date: 20150226
  Transmission Date: 20150721
  Serious: Yes (Hospitalization)
  Sender: FDA-Public Use
  Company Number: TPA2010A04786

PATIENT
  Age: 65 Year
  Sex: Male
  Weight: 67.13 kg

DRUGS (7)
  1. LISINOPRIL (LISINOPRIL) [Concomitant]
     Active Substance: LISINOPRIL
  2. PREVACID [Suspect]
     Active Substance: LANSOPRAZOLE
     Route: 048
     Dates: start: 2001, end: 200508
  3. DIAZEPAM (DIAZEPAM) [Concomitant]
     Active Substance: DIAZEPAM
  4. MELOXICAM  (MELOXICAM) [Concomitant]
     Active Substance: MELOXICAM
  5. MIRTAZAPINE (MIRTAZAPINE) [Concomitant]
     Active Substance: MIRTAZAPINE
  6. PREVACID [Suspect]
     Active Substance: LANSOPRAZOLE
     Indication: BARRETT^S OESOPHAGUS
     Route: 048
     Dates: start: 2001, end: 200508
  7. TAMSULOSIN (ALL OTHER THERAPEUTIC PRODUCTS) [Concomitant]

REACTIONS (4)
  - Constipation [None]
  - Drug ineffective [None]
  - Painful defaecation [None]
  - Vomiting projectile [None]

NARRATIVE: CASE EVENT DATE: 2005
